FAERS Safety Report 7711546-2 (Version None)
Quarter: 2011Q3

REPORT INFORMATION
  Report Type: 
  Country: None (occurrence: None)
  Receive Date: 20110826
  Receipt Date: 20110822
  Transmission Date: 20111222
  Serious: Yes (Other)
  Sender: FDA-Public Use
  Company Number: NZ-JNJFOC-20100805906

PATIENT
  Sex: Female
  Weight: 72 kg

DRUGS (11)
  1. GOLIMUMAB [Suspect]
     Indication: RHEUMATOID ARTHRITIS
     Route: 058
     Dates: start: 20100724
  2. BIMATOPROST [Concomitant]
     Route: 047
     Dates: start: 20071201
  3. CHOLECALCIFEROL [Concomitant]
     Route: 048
  4. GOLIMUMAB [Suspect]
     Route: 058
     Dates: start: 20060530
  5. SIMAVASTATIN [Concomitant]
     Route: 048
     Dates: start: 20071013
  6. ETIDRONATE DISODIUM [Concomitant]
     Route: 048
     Dates: start: 20090520
  7. METHOTREXATE [Suspect]
     Indication: RHEUMATOID ARTHRITIS
     Route: 048
     Dates: start: 20060504, end: 20060525
  8. NAPROXEN [Concomitant]
     Route: 048
     Dates: start: 20021119
  9. PAROXETINE HCL [Concomitant]
     Route: 048
  10. PLACEBO [Suspect]
     Indication: RHEUMATOID ARTHRITIS
     Route: 048
     Dates: start: 20060601
  11. CALCIUM CARBONATE [Concomitant]
     Route: 048

REACTIONS (1)
  - BASAL CELL CARCINOMA [None]
